FAERS Safety Report 6520017-0 (Version None)
Quarter: 2009Q4

REPORT INFORMATION
  Report Type: 
  Country: None (occurrence: None)
  Receive Date: 20091229
  Receipt Date: 20091223
  Transmission Date: 20100525
  Serious: Yes (Hospitalization)
  Sender: FDA-Public Use
  Company Number: KR-JNJFOC-20091101601

PATIENT
  Age: 54 Year
  Sex: Female

DRUGS (4)
  1. FAMOTIDINE [Suspect]
  2. FAMOTIDINE [Suspect]
     Indication: GASTRITIS EROSIVE
     Dosage: STOPPED UPON HOSPITALIZATION
  3. AZINTAL [Concomitant]
     Indication: GASTRITIS
  4. CISAPRIDE [Concomitant]
     Indication: GASTRITIS

REACTIONS (1)
  - HEPATITIS [None]
